FAERS Safety Report 6662543-X (Version None)
Quarter: 2010Q1

REPORT INFORMATION
  Report Type: 
  Country: None (occurrence: None)
  Receive Date: 20100329
  Receipt Date: 20100318
  Transmission Date: 20100710
  Serious: Yes (Hospitalization)
  Sender: FDA-Public Use
  Company Number: 2010SP003664

PATIENT
  Age: 15 Year
  Sex: Female

DRUGS (2)
  1. MIRTAZAPINE [Suspect]
     Indication: INTENTIONAL SELF-INJURY
     Dosage: 90 MG; ONCE; PO
     Route: 048
     Dates: start: 20091126, end: 20091126
  2. ZOPICLON (ZOPICLONE) (7.5 MG) [Suspect]
     Indication: INTENTIONAL SELF-INJURY
     Dosage: 15 MG; ONCE; PO
     Route: 048
     Dates: start: 20091126, end: 20091126

REACTIONS (9)
  - ASTHENIA [None]
  - DYSGEUSIA [None]
  - FAMILY STRESS [None]
  - HAEMOGLOBIN DECREASED [None]
  - OVERDOSE [None]
  - PSYCHOMOTOR RETARDATION [None]
  - SPEECH DISORDER [None]
  - SUICIDE ATTEMPT [None]
  - VISION BLURRED [None]
